FAERS Safety Report 14014137 (Version 1)
Quarter: 2017Q3

REPORT INFORMATION
  Report Type: Other
  Country: CA (occurrence: CA)
  Receive Date: 20170927
  Receipt Date: 20170927
  Transmission Date: 20171128
  Serious: Yes (Hospitalization)
  Sender: FDA-Public Use
  Company Number: CA-ORCHID HEALTHCARE-2027856

PATIENT
  Age: 12 Day
  Sex: Male
  Weight: 2.71 kg

DRUGS (9)
  1. ACETAMINOPHEN AND CODEINE [Concomitant]
     Active Substance: ACETAMINOPHEN\CODEINE PHOSPHATE
     Route: 065
  2. MULTIVITAMIN [Concomitant]
     Active Substance: VITAMINS
     Route: 065
  3. LAMOTRIGINE. [Suspect]
     Active Substance: LAMOTRIGINE
     Route: 048
  4. SERTRALINE [Suspect]
     Active Substance: SERTRALINE HYDROCHLORIDE
     Route: 048
  5. DOCUSATE [Concomitant]
     Active Substance: DOCUSATE
     Route: 065
  6. FOLIC ACID. [Concomitant]
     Active Substance: FOLIC ACID
     Route: 065
  7. NAPROXEN. [Concomitant]
     Active Substance: NAPROXEN
     Route: 065
  8. LEVOTHYROXINE. [Concomitant]
     Active Substance: LEVOTHYROXINE
     Route: 065
  9. ARIPIPRAZOLE (ANDA 202683) [Suspect]
     Active Substance: ARIPIPRAZOLE
     Indication: BIPOLAR DISORDER
     Route: 048

REACTIONS (29)
  - Somnolence [Unknown]
  - Irritability [Unknown]
  - Moaning [Recovered/Resolved]
  - Blood pressure decreased [Recovered/Resolved]
  - Acute kidney injury [Recovered/Resolved]
  - Dehydration [Recovered/Resolved]
  - Skin turgor decreased [Recovered/Resolved]
  - Partial seizures with secondary generalisation [Recovered/Resolved]
  - Gangrene [Recovered/Resolved]
  - Hypovolaemic shock [Recovered/Resolved]
  - Peripheral artery thrombosis [Recovered/Resolved]
  - Rhabdomyolysis [Recovered/Resolved]
  - Capillary nail refill test abnormal [Recovered/Resolved]
  - Hypernatraemia [Recovered/Resolved]
  - Acidosis [Recovered/Resolved]
  - Blood lactate dehydrogenase abnormal [Recovered/Resolved]
  - Maternal drugs affecting foetus [Recovered/Resolved]
  - Respiratory rate increased [Recovered/Resolved]
  - Disseminated intravascular coagulation in newborn [Recovered/Resolved]
  - Alanine aminotransferase increased [Recovered/Resolved]
  - Necrosis [Recovered/Resolved]
  - Poor feeding infant [Unknown]
  - Weight decrease neonatal [Unknown]
  - Livedo reticularis [Recovered/Resolved]
  - Mucous membrane disorder [Recovered/Resolved]
  - Skin discolouration [Recovered/Resolved]
  - Heart rate increased [Recovered/Resolved]
  - Blood glucose abnormal [Recovered/Resolved]
  - Hypoperfusion [Recovered/Resolved]
